FAERS Safety Report 20302089 (Version 1)
Quarter: 2022Q1

REPORT INFORMATION
  Report Type: Spontaneous
  Country: DE (occurrence: DE)
  Receive Date: 20220105
  Receipt Date: 20220105
  Transmission Date: 20220423
  Serious: Yes (Hospitalization)
  Sender: FDA-Public Use
  Company Number: DE-ADRED-07224-01

PATIENT
  Age: 88 Year
  Sex: Male

DRUGS (9)
  1. CLOPIDOGREL [Suspect]
     Active Substance: CLOPIDOGREL BISULFATE
     Indication: Product used for unknown indication
     Dosage: 75 MG, 1-0-0-0, TABLETS ()
     Route: 048
  2. ASPIRIN [Suspect]
     Active Substance: ASPIRIN
     Indication: Product used for unknown indication
     Dosage: 100 MG, 1-0-0-0, TABLETS ()
     Route: 048
  3. Bisoprolol 5-1A Pharma [Concomitant]
     Indication: Product used for unknown indication
     Dosage: 5 MG, 0.5-0-0.5-0, TABLETS ()
     Route: 048
  4. SPIRONOLACTONE [Concomitant]
     Active Substance: SPIRONOLACTONE
     Indication: Product used for unknown indication
     Dosage: 25 MG, 1-0-0-0, TABLETS ()
     Route: 048
  5. Atorvastatin-1A Pharma 20mg [Concomitant]
     Indication: Product used for unknown indication
     Dosage: 20 MG, 0-0-1-0, TABLETS ()
     Route: 048
  6. Metformin 500-1A Pharma [Concomitant]
     Indication: Product used for unknown indication
     Dosage: 500 MG, 1-0-0-0, TABLETS ()
     Route: 048
  7. Urapidil Stragen 60mg [Concomitant]
     Indication: Product used for unknown indication
     Dosage: 60 MG, 1-0-1-1, SUSTAINED-RELEASE CAPSULES ()
     Route: 048
  8. Nitrendipin AL 10 [Concomitant]
     Indication: Product used for unknown indication
     Dosage: 10 MG, 1-0-0-0, TABLETS ()
     Route: 048
  9. RAMIPRIL-ISIS 5mg [Concomitant]
     Indication: Product used for unknown indication
     Dosage: 5 MG, 1-0-0-0, TABLETS ()
     Route: 048

REACTIONS (3)
  - Haematochezia [Unknown]
  - Dizziness [Unknown]
  - Anaemia [Unknown]
